FAERS Safety Report 8409264-0 (Version None)
Quarter: 2012Q2

REPORT INFORMATION
  Report Type: 
  Country: None (occurrence: None)
  Receive Date: 20120605
  Receipt Date: 20120531
  Transmission Date: 20120825
  Serious: Yes (Hospitalization)
  Sender: FDA-Public Use
  Company Number: US-AMGEN-USASP2012034351

PATIENT
  Age: 71 Year
  Sex: Male

DRUGS (1)
  1. NPLATE [Suspect]
     Indication: IDIOPATHIC THROMBOCYTOPENIC PURPURA
     Dates: start: 20110101

REACTIONS (18)
  - MUSCULAR WEAKNESS [None]
  - SPLENECTOMY [None]
  - HEADACHE [None]
  - ABDOMINAL PAIN [None]
  - PARAESTHESIA [None]
  - MYALGIA [None]
  - PAIN IN EXTREMITY [None]
  - FALL [None]
  - PLATELET COUNT DECREASED [None]
  - CONFUSIONAL STATE [None]
  - GAIT DISTURBANCE [None]
  - INSOMNIA [None]
  - CHOLECYSTECTOMY [None]
  - DIZZINESS [None]
  - MUSCULOSKELETAL PAIN [None]
  - HYPOAESTHESIA [None]
  - ARTHRALGIA [None]
  - DYSPEPSIA [None]
